FAERS Safety Report 23101175 (Version 1)
Quarter: 2023Q4

REPORT INFORMATION
  Report Type: Spontaneous
  Country: TW (occurrence: TW)
  Receive Date: 20231024
  Receipt Date: 20231024
  Transmission Date: 20240110
  Serious: Yes (Other)
  Sender: FDA-Public Use
  Company Number: TW-MYLANLABS-2003153398TW

PATIENT
  Age: 67 Year
  Sex: Female

DRUGS (5)
  1. XALATAN [Suspect]
     Active Substance: LATANOPROST
     Indication: Intraocular pressure increased
     Dosage: 1 DROP, QD
     Route: 047
     Dates: start: 200007, end: 200109
  2. XALATAN [Suspect]
     Active Substance: LATANOPROST
     Indication: Borderline glaucoma
  3. DORZOLAMIDE [Concomitant]
     Active Substance: DORZOLAMIDE
     Indication: Product used for unknown indication
     Dosage: UNK
     Route: 065
  4. BETABLOK [Concomitant]
     Indication: Product used for unknown indication
     Dosage: UNK
     Route: 065
  5. PILOCARPINE [Concomitant]
     Active Substance: PILOCARPINE
     Dosage: UNK
     Route: 047

REACTIONS (3)
  - Iris cyst [Recovered/Resolved]
  - Cyst [Recovered/Resolved]
  - Eye inflammation [Unknown]

NARRATIVE: CASE EVENT DATE: 20010501
